FAERS Safety Report 8532440 (Version 6)
Quarter: 2013Q2

REPORT INFORMATION
  Report Type: Spontaneous
  Country: US (occurrence: US)
  Receive Date: 20120426
  Receipt Date: 20130614
  Transmission Date: 20140414
  Serious: Yes (Hospitalization)
  Sender: FDA-Public Use
  Company Number: US-GLAXOSMITHKLINE-A0975015A

PATIENT
  Age: 42 Year
  Sex: Female

DRUGS (1)
  1. FLOLAN [Suspect]
     Indication: COR PULMONALE CHRONIC
     Dosage: 20NGKM CONTINUOUS
     Route: 042
     Dates: start: 20080919

REACTIONS (10)
  - Syncope [Unknown]
  - Loss of consciousness [Unknown]
  - Clostridium difficile infection [Unknown]
  - Pancreatic disorder [Unknown]
  - Vomiting [Unknown]
  - Nausea [Unknown]
  - Nocturnal dyspnoea [Unknown]
  - Weight fluctuation [Unknown]
  - Gastric infection [Unknown]
  - Pancreatitis chronic [Unknown]
